FAERS Safety Report 5869021-6 (Version None)
Quarter: 2008Q3

REPORT INFORMATION
  Report Type: 
  Country: None (occurrence: None)
  Receive Date: 20080903
  Receipt Date: 20080829
  Transmission Date: 20090109
  Serious: Yes (Hospitalization)
  Sender: FDA-Public Use
  Company Number: A0744770A

PATIENT
  Age: 55 Year
  Sex: Male
  Weight: 104.5 kg

DRUGS (5)
  1. AVANDIA [Suspect]
     Dosage: 8MG PER DAY
     Route: 048
     Dates: start: 20020101, end: 20070701
  2. ASPIRIN [Concomitant]
     Dosage: 325MG PER DAY
  3. GLUCOVANCE [Concomitant]
  4. LISINOPRIL [Concomitant]
     Dosage: 10MG PER DAY
  5. PLAVIX [Concomitant]
     Dosage: 75MG PER DAY

REACTIONS (5)
  - ACUTE CORONARY SYNDROME [None]
  - ANGINA UNSTABLE [None]
  - ARTERIOSCLEROSIS [None]
  - CORONARY ARTERY DISEASE [None]
  - MYOCARDIAL INFARCTION [None]
